FAERS Safety Report 20911806 (Version 6)
Quarter: 2022Q3

REPORT INFORMATION
  Report Type: Spontaneous
  Country: US (occurrence: US)
  Receive Date: 20220603
  Receipt Date: 20220926
  Transmission Date: 20221027
  Serious: No
  Sender: FDA-Public Use
  Company Number: US-BRISTOL-MYERS SQUIBB COMPANY-2022-043066

PATIENT
  Age: 66 Year
  Sex: Female

DRUGS (2)
  1. REVLIMID [Suspect]
     Active Substance: LENALIDOMIDE
     Indication: Plasma cell myeloma
     Dosage: FREQUENCY-TAKE 1 CAPSULE BY MOUTH DAILY ON DAYS 1-14 EVERY 21 DAYS.
     Route: 048
     Dates: start: 20220428
  2. REVLIMID [Suspect]
     Active Substance: LENALIDOMIDE
     Dosage: FREQ - TAKE 1 CAPSULE BY MOUTH DAILY ON DAYS 1-14 EVERY 21 DAYS
     Route: 048

REACTIONS (11)
  - Headache [Unknown]
  - Feeling jittery [Unknown]
  - Joint swelling [Unknown]
  - Fungal infection [Unknown]
  - Tooth disorder [Unknown]
  - Emotional disorder [Unknown]
  - Nervousness [Unknown]
  - Pain [Unknown]
  - Hypersensitivity [Unknown]
  - Hordeolum [Unknown]
  - Off label use [Unknown]
